FAERS Safety Report 5627593-0 (Version None)
Quarter: 2008Q1

REPORT INFORMATION
  Report Type: 
  Country: None (occurrence: None)
  Receive Date: 20080215
  Receipt Date: 20080204
  Transmission Date: 20080703
  Serious: Yes (Death)
  Sender: FDA-Public Use
  Company Number: US-ROCHE-534005

PATIENT
  Age: 84 Year
  Sex: Male

DRUGS (2)
  1. CELLCEPT [Suspect]
     Dosage: PATIENT TAKING CELLCEPT 500 MG, 3 DOSEFORMS EVERY MORNING AND 2 DOSEFORMS EVERY EVENING AT BEDTIME +
     Route: 048
     Dates: start: 20040401, end: 20070901
  2. COUMADIN [Concomitant]
     Indication: THROMBOSIS PROPHYLAXIS

REACTIONS (2)
  - CEREBRAL HAEMORRHAGE [None]
  - FALL [None]
